FAERS Safety Report 9615317 (Version 2)
Quarter: 2013Q4

REPORT INFORMATION
  Report Type: Spontaneous
  Country: US (occurrence: US)
  Receive Date: 20131011
  Receipt Date: 20131011
  Transmission Date: 20140711
  Serious: No
  Sender: FDA-Public Use
  Company Number: US-PURDUE-USA-2013-0097733

PATIENT
  Age: 51 Year
  Sex: Female

DRUGS (2)
  1. BUTRANS [Suspect]
     Indication: PAIN
     Dosage: 10 MCG, UNK
     Route: 062
     Dates: start: 20130113, end: 20130114
  2. PERCOCET                           /00867901/ [Concomitant]
     Indication: PAIN
     Dosage: 10/325MG FOUR TIMES DAILY
     Route: 048

REACTIONS (7)
  - Burning sensation [Recovered/Resolved]
  - Erythema [Recovered/Resolved]
  - Chest pain [Recovered/Resolved]
  - Headache [Recovered/Resolved]
  - Pruritus generalised [Recovered/Resolved]
  - Rash generalised [Not Recovered/Not Resolved]
  - Insomnia [Recovered/Resolved]
